FAERS Safety Report 21412339 (Version 1)
Quarter: 2022Q4

REPORT INFORMATION
  Report Type: Spontaneous
  Country: US (occurrence: US)
  Receive Date: 20221005
  Receipt Date: 20221005
  Transmission Date: 20230113
  Serious: No
  Sender: FDA-Public Use
  Company Number: US-INTRA-CELLULAR THERAPIES, INC.-2022ICT01233

PATIENT
  Age: 48 Year
  Sex: Male

DRUGS (5)
  1. CAPLYTA [Suspect]
     Active Substance: LUMATEPERONE
     Indication: Bipolar disorder
     Dosage: 0.5 CAPSULES BY BREAKING IT IN HALF
  2. CAPLYTA [Suspect]
     Active Substance: LUMATEPERONE
     Indication: Bipolar II disorder
  3. REXULTI [Concomitant]
     Active Substance: BREXPIPRAZOLE
  4. DEPAKOTE [Concomitant]
     Active Substance: DIVALPROEX SODIUM
  5. LUVOX [Concomitant]
     Active Substance: FLUVOXAMINE MALEATE
     Dosage: 1/2 CAPSULE

REACTIONS (3)
  - Diplopia [Recovered/Resolved]
  - Coordination abnormal [Recovered/Resolved]
  - Off label use [Recovered/Resolved]
